FAERS Safety Report 6397709-X (Version None)
Quarter: 2009Q4

REPORT INFORMATION
  Report Type: 
  Country: None (occurrence: None)
  Receive Date: 20091007
  Receipt Date: 20090922
  Transmission Date: 20100525
  Serious: Yes (Other)
  Sender: FDA-Public Use
  Company Number: 1000009250

PATIENT
  Age: 80 Year
  Sex: Male

DRUGS (5)
  1. TIAZAC [Suspect]
     Dosage: 240 MG
  2. ATIVAN [Concomitant]
  3. CLONAZEPAM [Concomitant]
  4. COUMADIN [Concomitant]
  5. DIURETICS [Concomitant]

REACTIONS (1)
  - BRADYCARDIA [None]
